FAERS Safety Report 10379642 (Version 5)
Quarter: 2015Q1

REPORT INFORMATION
  Report Type: Report from Study
  Country: BR (occurrence: BR)
  Receive Date: 20140812
  Receipt Date: 20150302
  Transmission Date: 20150720
  Serious: Yes (Hospitalization, Other)
  Sender: FDA-Public Use
  Company Number: PHHY2014BR099825

PATIENT
  Age: 71 Year
  Sex: Male

DRUGS (6)
  1. GALVUS MET [Suspect]
     Active Substance: METFORMIN HYDROCHLORIDE\VILDAGLIPTIN
     Dosage: 1 DF (1000/50 MG), QD (AFTER LUNCH)
     Route: 065
     Dates: start: 201501
  2. APRESOLIN [Suspect]
     Active Substance: HYDRALAZINE HYDROCHLORIDE
     Indication: HYPERTENSION
     Dosage: 3 DF (50 MG), QD
     Route: 048
  3. METFORMIN [Suspect]
     Active Substance: METFORMIN HYDROCHLORIDE
     Indication: DIABETES MELLITUS
     Dosage: 3 DF, QD
     Route: 048
  4. DIOVAN [Suspect]
     Active Substance: VALSARTAN
     Indication: HYPERTENSION
     Dosage: 1 DF, QD
     Route: 048
  5. GALVUS MET [Suspect]
     Active Substance: METFORMIN HYDROCHLORIDE\VILDAGLIPTIN
     Indication: DIABETES MELLITUS
     Dosage: 1 DF (850/50MG), QD
     Route: 048
     Dates: end: 201501
  6. INSULIN [Suspect]
     Active Substance: INSULIN NOS
     Indication: DIABETES MELLITUS
     Route: 058
     Dates: start: 20131204

REACTIONS (15)
  - Depression [Recovering/Resolving]
  - Emotional disorder [Recovering/Resolving]
  - Memory impairment [Recovering/Resolving]
  - Cerebrovascular accident [Recovering/Resolving]
  - Coagulopathy [Recovering/Resolving]
  - Hemiplegia [Unknown]
  - Back pain [Recovered/Resolved]
  - Fatigue [Recovering/Resolving]
  - Thyroid disorder [Recovering/Resolving]
  - Weight increased [Not Recovered/Not Resolved]
  - Myocardial infarction [Recovering/Resolving]
  - Thyroid neoplasm [Unknown]
  - Arrhythmia [Recovering/Resolving]
  - Nephrolithiasis [Recovering/Resolving]
  - Blood glucose increased [Recovering/Resolving]

NARRATIVE: CASE EVENT DATE: 2013
